FAERS Safety Report 7350627-2 (Version None)
Quarter: 2011Q1

REPORT INFORMATION
  Report Type: 
  Country: None (occurrence: None)
  Receive Date: 20110222
  Receipt Date: 20101122
  Transmission Date: 20110831
  Serious: No
  Sender: FDA-Public Use
  Company Number: 022574

PATIENT
  Sex: Male
  Weight: 82 kg

DRUGS (3)
  1. KLONOPIN [Concomitant]
  2. TRILEPTAL [Concomitant]
  3. LACOSAMIDE [Suspect]
     Indication: CONVULSION
     Dosage: (50 MG BID ORAL)
     Route: 048
     Dates: start: 20101115

REACTIONS (7)
  - AGITATION [None]
  - EUPHORIC MOOD [None]
  - INSOMNIA [None]
  - FEELING ABNORMAL [None]
  - DIPLOPIA [None]
  - VOMITING [None]
  - NAUSEA [None]
